FAERS Safety Report 4429635-7 (Version None)
Quarter: 2004Q3

REPORT INFORMATION
  Report Type: 
  Country: None (occurrence: None)
  Receive Date: 20040816
  Receipt Date: 20040804
  Transmission Date: 20050211
  Serious: Yes (Other)
  Sender: FDA-Public Use
  Company Number: 2004053221

PATIENT
  Age: 42 Year
  Sex: Male
  Weight: 81.6475 kg

DRUGS (2)
  1. BENADRYL [Suspect]
     Indication: HYPERSENSITIVITY
     Dosage: 3-4 TABLETS PRN, ORAL
     Route: 048
  2. VITAMINS (VITAMINS) [Concomitant]

REACTIONS (2)
  - CONDITION AGGRAVATED [None]
  - HYPERSENSITIVITY [None]
